FAERS Safety Report 10239302 (Version 3)
Quarter: 2015Q3

REPORT INFORMATION
  Report Type: Report from Study
  Country: DE (occurrence: DE)
  Receive Date: 20140616
  Receipt Date: 20150827
  Transmission Date: 20151125
  Serious: Yes (Hospitalization, Other)
  Sender: FDA-Public Use
  Company Number: DE-BRISTOL-MYERS SQUIBB COMPANY-20734646

PATIENT
  Age: 67 Year
  Sex: Male

DRUGS (3)
  1. TAZOBACTAM SODIUM [Concomitant]
     Active Substance: TAZOBACTAM SODIUM
     Indication: PRODUCT USED FOR UNKNOWN INDICATION
     Dosage: UNK
     Route: 065
     Dates: start: 20140505, end: 20140519
  2. IPILIMUMAB [Suspect]
     Active Substance: IPILIMUMAB
     Indication: MALIGNANT MELANOMA
     Dosage: 234 MG, UNK
     Route: 042
     Dates: start: 20140429
  3. PIPERACILLIN [Concomitant]
     Active Substance: PIPERACILLIN
     Indication: PRODUCT USED FOR UNKNOWN INDICATION
     Dosage: UNK
     Route: 065
     Dates: start: 20140505, end: 20140519

REACTIONS (3)
  - Epstein-Barr virus test [Unknown]
  - Acute respiratory distress syndrome [Recovered/Resolved]
  - Herpes simplex [Unknown]

NARRATIVE: CASE EVENT DATE: 20140505
